FAERS Safety Report 7373402-1 (Version None)
Quarter: 2011Q1

REPORT INFORMATION
  Report Type: 
  Country: None (occurrence: None)
  Receive Date: 20110325
  Receipt Date: 20110310
  Transmission Date: 20110831
  Serious: Yes (Other)
  Sender: FDA-Public Use
  Company Number: GB-PAR PHARMACEUTICAL, INC-2011SCPR002768

PATIENT
  Age: 57 Year
  Sex: Male

DRUGS (4)
  1. IBUPROFEN [Suspect]
     Indication: PRODUCT USED FOR UNKNOWN INDICATION
     Dosage: UNK
     Route: 065
  2. LY2181308 (STUDY DRUG) [Interacting]
     Indication: METASTATIC MALIGNANT MELANOMA
     Dosage: 74 INTRAVENOUS 750-MG DOSES OVER 18 MONTHS
     Route: 042
  3. RAMIPRIL [Suspect]
     Indication: HYPERTENSION
     Dosage: 2.5 MG, UNKNOWN
     Route: 065
  4. ATENOLOL [Concomitant]
     Indication: HYPERTENSION
     Dosage: 25 MG, UNKNOWN
     Route: 065

REACTIONS (4)
  - BLOOD LACTATE DEHYDROGENASE ABNORMAL [None]
  - RENAL INJURY [None]
  - THROMBOCYTOPENIA [None]
  - HYPERGAMMAGLOBULINAEMIA [None]
